FAERS Safety Report 20750869 (Version 1)
Quarter: 2022Q2

REPORT INFORMATION
  Report Type: Other
  Country: JP (occurrence: JP)
  Receive Date: 20220426
  Receipt Date: 20220426
  Transmission Date: 20220720
  Serious: Yes (Hospitalization, Other)
  Sender: FDA-Public Use
  Company Number: JP-CHUGAI-2022003410

PATIENT
  Age: 73 Year
  Sex: Male
  Weight: 73.2 kg

DRUGS (4)
  1. ATEZOLIZUMAB [Suspect]
     Active Substance: ATEZOLIZUMAB
     Indication: Small cell lung cancer extensive stage
     Route: 041
     Dates: start: 20210818, end: 20211213
  2. CARBOPLATIN [Suspect]
     Active Substance: CARBOPLATIN
     Indication: Small cell lung cancer extensive stage
     Dosage: 520 MILLIGRAM, SINGLE
     Route: 041
     Dates: start: 20210818, end: 20210818
  3. CARBOPLATIN [Suspect]
     Active Substance: CARBOPLATIN
     Dosage: 470 MILLIGRAM
     Route: 041
     Dates: start: 20210914, end: 20211109
  4. ETOPOSIDE [Suspect]
     Active Substance: ETOPOSIDE
     Indication: Small cell lung cancer extensive stage
     Dosage: 180 MILLIGRAM
     Route: 041
     Dates: start: 20210818, end: 20211111

REACTIONS (5)
  - Interstitial lung disease [Recovered/Resolved]
  - Immune system disorder [Unknown]
  - Pneumothorax [Recovered/Resolved]
  - Neutrophil count decreased [Recovered/Resolved]
  - Platelet count decreased [Recovered/Resolved]

NARRATIVE: CASE EVENT DATE: 20210830
